FAERS Safety Report 8009132 (Version 3)
Quarter: 2013Q2

REPORT INFORMATION
  Report Type: Report from Study
  Country: MX (occurrence: MX)
  Receive Date: 20110624
  Receipt Date: 20130609
  Transmission Date: 20140414
  Serious: Yes (Hospitalization)
  Sender: FDA-Public Use
  Company Number: PHHY2011MX51824

PATIENT
  Age: 72 Year
  Sex: Female

DRUGS (1)
  1. CO-DIOVAN [Suspect]
     Indication: HYPERTENSION
     Dosage: 1 DF, DAILY (160/25 MG)
     Route: 048
     Dates: start: 20101201

REACTIONS (3)
  - Cataract [Recovered/Resolved]
  - Vision blurred [Recovered/Resolved]
  - Blood urea increased [Unknown]
